FAERS Safety Report 6163468-9 (Version None)
Quarter: 2009Q2

REPORT INFORMATION
  Report Type: 
  Country: None (occurrence: None)
  Receive Date: 20090420
  Receipt Date: 20090420
  Transmission Date: 20091009
  Serious: Yes (Hospitalization)
  Sender: FDA-Public Use
  Company Number: None

PATIENT
  Sex: Male
  Weight: 58.5 kg

DRUGS (2)
  1. CYTARABINE [Suspect]
     Dosage: 37920 MG
  2. LESTAURTINIB [Suspect]
     Dosage: 4257 MG

REACTIONS (15)
  - ABDOMINAL PAIN UPPER [None]
  - BLOOD CULTURE POSITIVE [None]
  - CHEST PAIN [None]
  - CLOSTRIDIUM DIFFICILE TOXIN TEST POSITIVE [None]
  - COMPUTERISED TOMOGRAM ABNORMAL [None]
  - ENTEROCOCCAL INFECTION [None]
  - GASTROINTESTINAL DISORDER [None]
  - INDURATION [None]
  - LUNG NEOPLASM [None]
  - MORBID THOUGHTS [None]
  - OESOPHAGEAL CANDIDIASIS [None]
  - PAIN IN EXTREMITY [None]
  - PERICARDIAL EFFUSION [None]
  - PERICARDITIS [None]
  - PYREXIA [None]
